FAERS Safety Report 15403091 (Version 1)
Quarter: 2018Q3

REPORT INFORMATION
  Report Type: Spontaneous
  Country: US (occurrence: US)
  Receive Date: 20180918
  Receipt Date: 20180918
  Transmission Date: 20181010
  Serious: Yes (Other)
  Sender: FDA-Public Use
  Company Number: None

PATIENT
  Sex: Female
  Weight: 79.83 kg

DRUGS (22)
  1. MULTIVITAMIN [Concomitant]
     Active Substance: VITAMINS
  2. RANITIDINE. [Concomitant]
     Active Substance: RANITIDINE
  3. ERTHROMYCIN [Concomitant]
  4. NOVOLOG [Concomitant]
     Active Substance: INSULIN ASPART
  5. CALCIUM + D3 [Concomitant]
     Active Substance: CALCIUM\CHOLECALCIFEROL
  6. FLUTICASONE. [Concomitant]
     Active Substance: FLUTICASONE
  7. PREDNISONE. [Concomitant]
     Active Substance: PREDNISONE
  8. IBRANCE [Suspect]
     Active Substance: PALBOCICLIB
     Indication: BREAST CANCER
     Route: 048
     Dates: start: 20180727
  9. GLIMEPIRIDE. [Concomitant]
     Active Substance: GLIMEPIRIDE
  10. HYDROXYZINE [Concomitant]
     Active Substance: HYDROXYZINE HYDROCHLORIDE
  11. LEVOCETIRIZINE [Concomitant]
     Active Substance: LEVOCETIRIZINE
  12. VITAMIN B12 [Concomitant]
     Active Substance: CYANOCOBALAMIN
  13. FENTANYL. [Concomitant]
     Active Substance: FENTANYL
  14. FOLIC ACID. [Concomitant]
     Active Substance: FOLIC ACID
  15. SENEXON [Concomitant]
     Active Substance: SENNOSIDES A AND B
  16. EZETIMIBE. [Concomitant]
     Active Substance: EZETIMIBE
  17. HYDROMORPHONE [Concomitant]
     Active Substance: HYDROMORPHONE
  18. OMEPRAZOLE. [Concomitant]
     Active Substance: OMEPRAZOLE
  19. SERTRALINE [Concomitant]
     Active Substance: SERTRALINE HYDROCHLORIDE
  20. TAMOXIFEN [Concomitant]
     Active Substance: TAMOXIFEN
  21. ALENDRONATE [Concomitant]
     Active Substance: ALENDRONATE SODIUM
  22. NYSTATIN. [Concomitant]
     Active Substance: NYSTATIN

REACTIONS (1)
  - Therapeutic response unexpected [None]
